FAERS Safety Report 15061977 (Version 1)
Quarter: 2018Q2

REPORT INFORMATION
  Report Type: Spontaneous
  Country: DK (occurrence: DK)
  Receive Date: 20180625
  Receipt Date: 20180625
  Transmission Date: 20180711
  Serious: Yes (Hospitalization)
  Sender: FDA-Public Use
  Company Number: DK-MYLANLABS-2018M1043575

PATIENT
  Age: 73 Year
  Sex: Female

DRUGS (13)
  1. ALLOPURINOL ^DAK^ [Concomitant]
     Active Substance: ALLOPURINOL
     Indication: GOUTY ARTHRITIS
     Dosage: 100 MG, QD, STYRKE: 100 MG.
     Route: 048
     Dates: start: 20171103
  2. SPIOLTO RESPIMAT [Concomitant]
     Active Substance: OLODATEROL HYDROCHLORIDE\TIOTROPIUM BROMIDE MONOHYDRATE
     Indication: CHRONIC OBSTRUCTIVE PULMONARY DISEASE
     Dosage: 2 DF, QD, STYRKE: 2,5+2,5 MIKROGRAM.
     Route: 055
     Dates: start: 20171106
  3. SIMVASTATIN ^ACTAVIS^ [Concomitant]
     Active Substance: SIMVASTATIN
     Indication: HYPERCHOLESTEROLAEMIA
     Dosage: 40 MG, QD, STYRKE: 40 MG.
     Route: 048
     Dates: start: 20120921
  4. KALEORID [Concomitant]
     Active Substance: POTASSIUM CHLORIDE
     Indication: MINERAL SUPPLEMENTATION
     Dosage: 3000 MG, QD, STYRKE: 750 MG.
     Route: 048
     Dates: start: 20150310
  5. IMDUR [Concomitant]
     Active Substance: ISOSORBIDE MONONITRATE
     Indication: ANGINA PECTORIS
     Dosage: 120 MG, QD, STYRKE: 60 MG.
     Route: 048
     Dates: start: 20150416
  6. UNIKALK BASIC [Concomitant]
     Indication: VITAMIN SUPPLEMENTATION
     Dosage: 800 MG, QD, STYRKE 400 MG.
     Route: 048
     Dates: start: 20180202
  7. ENALAPRIL ^KRKA^ [Concomitant]
     Indication: HYPERTENSION
     Dosage: 40 MG, QD, STYRKE: 20 MG.
     Route: 048
     Dates: start: 20171006
  8. FOLIMET [Concomitant]
     Indication: FOLATE DEFICIENCY
     Dosage: 5 MG, QD, STYRKE: 5 MG.
     Route: 048
     Dates: start: 20171120
  9. VIBEDEN [Concomitant]
     Indication: VITAMIN B12 DEFICIENCY
     Dosage: 1 DF,8 WEEK
     Route: 030
     Dates: start: 20171107
  10. BUVENTOL EASYHALER [Concomitant]
     Active Substance: ALBUTEROL SULFATE
     Indication: DYSPNOEA
     Dosage: DOSIS: 1 SUG EFTER BEHOV. H?JST 4 GANGE DAGLIGT.^STYRKE: 200 MIKROGRAM/DOSIS.
     Route: 055
     Dates: start: 20171106
  11. CLOPIDOGREL [Suspect]
     Active Substance: CLOPIDOGREL BISULFATE
     Indication: THROMBOSIS PROPHYLAXIS
     Dosage: 75 MG, QD, STYRKE: 75 MG.
     Route: 048
     Dates: start: 20161017
  12. JANUMET [Suspect]
     Active Substance: METFORMIN HYDROCHLORIDE\SITAGLIPTIN PHOSPHATE
     Indication: DIABETES MELLITUS
     Dosage: 2 DF, QD, STYRKE: 850+50 MG.
     Route: 048
     Dates: start: 20160512
  13. METOPROLOL ^GEA^ [Concomitant]
     Active Substance: METOPROLOL
     Indication: HYPERTENSION
     Dosage: DOSIS: 2 TABLETTER MORGEN, 1 AFTEN.^STYRKE: 50 MG.
     Route: 048

REACTIONS (2)
  - Chest discomfort [Recovering/Resolving]
  - Dyspnoea [Recovering/Resolving]

NARRATIVE: CASE EVENT DATE: 20180308
